FAERS Safety Report 10172805 (Version 2)
Quarter: 2014Q2

REPORT INFORMATION
  Report Type: Spontaneous
  Country: MA (occurrence: MA)
  Receive Date: 20140515
  Receipt Date: 20140519
  Transmission Date: 20141212
  Serious: Yes (Other)
  Sender: FDA-Public Use
  Company Number: MA-ROCHE-1401570

PATIENT
  Sex: Female

DRUGS (4)
  1. PEGASYS [Suspect]
     Indication: HEPATITIS C
     Route: 058
  2. PEGASYS [Suspect]
     Dosage: DOSE REDUCED
     Route: 058
  3. COPEGUS [Suspect]
     Indication: HEPATITIS C
     Dosage: 5 TABLETS PER DAY
     Route: 048
  4. COPEGUS [Suspect]
     Dosage: DOSE REDUCED TO 3 TABLETS PER DAY
     Route: 048

REACTIONS (6)
  - Anaemia [Not Recovered/Not Resolved]
  - Diarrhoea [Not Recovered/Not Resolved]
  - Leukopenia [Not Recovered/Not Resolved]
  - Neutropenia [Not Recovered/Not Resolved]
  - Decreased appetite [Not Recovered/Not Resolved]
  - Depression [Not Recovered/Not Resolved]
